FAERS Safety Report 6651389-4 (Version None)
Quarter: 2010Q1

REPORT INFORMATION
  Report Type: 
  Country: None (occurrence: None)
  Receive Date: 20100325
  Receipt Date: 20100315
  Transmission Date: 20100710
  Serious: Yes (Other)
  Sender: FDA-Public Use
  Company Number: DK-JNJFOC-20100100495

PATIENT
  Sex: Female
  Weight: 62 kg

DRUGS (2)
  1. RISPERIDONE [Suspect]
     Indication: ANXIETY DISORDER
     Route: 030
  2. CETRIZINE [Concomitant]
     Indication: HYPERSENSITIVITY
     Route: 048

REACTIONS (14)
  - COLD SWEAT [None]
  - CONJUNCTIVITIS ALLERGIC [None]
  - DYSPHONIA [None]
  - DYSPNOEA [None]
  - LARYNGEAL OEDEMA [None]
  - LOSS OF CONSCIOUSNESS [None]
  - MUSCLE SPASMS [None]
  - MYOCARDIAL INFARCTION [None]
  - OFF LABEL USE [None]
  - PALPITATIONS [None]
  - SALIVARY HYPERSECRETION [None]
  - TREATMENT NONCOMPLIANCE [None]
  - TREMOR [None]
  - VOCAL CORD CYST [None]
